FAERS Safety Report 25968660 (Version 1)
Quarter: 2025Q4

REPORT INFORMATION
  Report Type: Spontaneous
  Country: US (occurrence: None)
  Receive Date: 20251027
  Receipt Date: 20251027
  Transmission Date: 20260118
  Serious: Yes (Hospitalization, Other)
  Sender: FDA-CTU
  Company Number: None

PATIENT
  Age: 45 Year
  Sex: Female
  Weight: 66.2 kg

DRUGS (1)
  1. KESIMPTA [Suspect]
     Active Substance: OFATUMUMAB
     Dosage: FREQUENCY : MONTHLY;?
     Route: 048
     Dates: start: 20220225, end: 20250828

REACTIONS (7)
  - Chest pain [None]
  - Troponin increased [None]
  - Viral infection [None]
  - Myocardial infarction [None]
  - Myocarditis [None]
  - Immunosuppression [None]
  - Stress cardiomyopathy [None]

NARRATIVE: CASE EVENT DATE: 20250915
